FAERS Safety Report 10506761 (Version 1)
Quarter: 2014Q3

REPORT INFORMATION
  Report Type: Spontaneous
  Country: US (occurrence: None)
  Receive Date: 20140915
  Receipt Date: 20140915
  Transmission Date: 20150326
  Serious: Yes (Other)
  Sender: FDA-Public Use
  Company Number: 2013-US-004676

PATIENT
  Age: 51 Year
  Sex: Female

DRUGS (9)
  1. LEVOTHYROXINE (LEVOTHYROXINE SODIUM) [Concomitant]
  2. WELLBUTRIN [Concomitant]
     Active Substance: BUPROPION HYDROCHLORIDE
  3. PREVIFEM (ETHINYLESTRADIOL, NORGESTIMATE) [Concomitant]
  4. ADDERALL [Suspect]
     Active Substance: AMPHETAMINE ASPARTATE\AMPHETAMINE SULFATE\DEXTROAMPHETAMINE SACCHARATE\DEXTROAMPHETAMINE SULFATE
     Indication: PRODUCT USED FOR UNKNOWN INDICATION
  5. ESTRADIOL (ESTRADIOL VALERATE) [Concomitant]
  6. AMPHETAMINE SALTS (AMFETAMINE SULFATE) [Concomitant]
  7. SINGULAIR [Concomitant]
     Active Substance: MONTELUKAST SODIUM
  8. XYREM [Suspect]
     Active Substance: SODIUM OXYBATE
     Indication: SOMNOLENCE
     Route: 048
     Dates: start: 201304, end: 2013
  9. CYTOMEL (LIOTHYRONINE SODIUM) [Concomitant]

REACTIONS (4)
  - Diarrhoea [None]
  - Blood pressure increased [None]
  - Off label use [None]
  - Dehydration [None]

NARRATIVE: CASE EVENT DATE: 2013
